FAERS Safety Report 7564386-1 (Version None)
Quarter: 2011Q2

REPORT INFORMATION
  Report Type: 
  Country: None (occurrence: None)
  Receive Date: 20110622
  Receipt Date: 20110610
  Transmission Date: 20111010
  Serious: Yes (Other)
  Sender: FDA-Public Use
  Company Number: PHHY2011DE28801

PATIENT
  Sex: Female

DRUGS (2)
  1. RASILEZ [Suspect]
     Indication: HYPERTENSION
     Dosage: 1 DF, QD
     Route: 048
     Dates: start: 20090401
  2. SIMVASTATIN [Concomitant]
     Indication: HYPERCHOLESTEROLAEMIA
     Dosage: 10 MG, PER DAY
     Route: 048
     Dates: start: 20080401

REACTIONS (4)
  - BRONCHITIS BACTERIAL [None]
  - BRONCHIAL HYPERREACTIVITY [None]
  - STRIDOR [None]
  - DYSPNOEA EXERTIONAL [None]
